FAERS Safety Report 17770388 (Version 22)
Quarter: 2025Q2

REPORT INFORMATION
  Report Type: Report from Study
  Country: US (occurrence: US)
  Receive Date: 20200512
  Receipt Date: 20250530
  Transmission Date: 20250716
  Serious: Yes (Hospitalization, Other)
  Sender: TAKEDA
  Company Number: US-SHIRE-US202015448

PATIENT
  Sex: Female

DRUGS (5)
  1. HUMAN IMMUNOGLOBULIN G [Suspect]
     Active Substance: HUMAN IMMUNOGLOBULIN G
     Indication: Immunodeficiency common variable
  2. HUMAN IMMUNOGLOBULIN G [Suspect]
     Active Substance: HUMAN IMMUNOGLOBULIN G
     Indication: Primary immunodeficiency syndrome
  3. GAMMAGARD LIQUID [Suspect]
     Active Substance: HUMAN IMMUNOGLOBULIN G
     Indication: Immunodeficiency common variable
  4. GAMMAGARD LIQUID [Suspect]
     Active Substance: HUMAN IMMUNOGLOBULIN G
     Indication: Primary immunodeficiency syndrome
  5. RITUXAN [Concomitant]
     Active Substance: RITUXIMAB

REACTIONS (90)
  - Kidney infection [Unknown]
  - Spinal cord injury [Unknown]
  - Cardiac flutter [Unknown]
  - Paralysis [Unknown]
  - Neuropathy peripheral [Unknown]
  - Fall [Unknown]
  - Radiation injury [Unknown]
  - Blood pressure abnormal [Unknown]
  - Thyroid disorder [Unknown]
  - Dysphagia [Unknown]
  - Epstein-Barr virus infection [Unknown]
  - Insomnia [Unknown]
  - Dyspnoea [Unknown]
  - Migraine [Unknown]
  - Paraesthesia [Unknown]
  - Dizziness [Unknown]
  - COVID-19 [Unknown]
  - Diplegia [Unknown]
  - Hydronephrosis [Unknown]
  - Autoimmune disorder [Unknown]
  - Chronic lymphocytic leukaemia [Unknown]
  - Cerebral disorder [Unknown]
  - Retinal detachment [Unknown]
  - Fatigue [Unknown]
  - Intracranial aneurysm [Unknown]
  - Pneumothorax [Unknown]
  - Sjogren^s syndrome [Unknown]
  - Adrenal insufficiency [Unknown]
  - Loss of consciousness [Unknown]
  - Anxiety [Unknown]
  - Inappropriate schedule of product administration [Unknown]
  - Respiratory disorder [Unknown]
  - Tinnitus [Unknown]
  - Anal incontinence [Unknown]
  - Musculoskeletal stiffness [Unknown]
  - Bone pain [Unknown]
  - Ear pain [Unknown]
  - Nightmare [Unknown]
  - Limb mass [Unknown]
  - Petechiae [Unknown]
  - Spinal pain [Unknown]
  - Flank pain [Unknown]
  - Vulvovaginal dryness [Unknown]
  - Muscle atrophy [Unknown]
  - Feeling jittery [Unknown]
  - Renal pain [Unknown]
  - Hepatic pain [Unknown]
  - Memory impairment [Unknown]
  - Breast mass [Unknown]
  - Thyroid mass [Unknown]
  - Limb injury [Unknown]
  - Pancreatic neoplasm [Unknown]
  - Peripheral swelling [Unknown]
  - Skin discolouration [Unknown]
  - Chronic fatigue syndrome [Unknown]
  - Liver disorder [Unknown]
  - Toothache [Unknown]
  - Intervertebral disc degeneration [Unknown]
  - Mastication disorder [Unknown]
  - Oropharyngeal pain [Unknown]
  - Chest pain [Unknown]
  - Asthenia [Unknown]
  - Blood pressure increased [Unknown]
  - Burning sensation [Unknown]
  - Cough [Unknown]
  - Vomiting [Unknown]
  - Pyrexia [Unknown]
  - Myalgia [Unknown]
  - Headache [Unknown]
  - Nausea [Unknown]
  - Hyporeflexia [Unknown]
  - Neoplasm [Unknown]
  - Mass [Unknown]
  - Weight increased [Unknown]
  - Histamine level decreased [Unknown]
  - Eating disorder [Unknown]
  - Blood immunoglobulin G decreased [Unknown]
  - Dehydration [Unknown]
  - Renal disorder [Unknown]
  - Blood urine present [Unknown]
  - Hepatic steatosis [Unknown]
  - Infection [Unknown]
  - Secretion discharge [Unknown]
  - Mastocytosis [Unknown]
  - Weight fluctuation [Unknown]
  - Productive cough [Unknown]
  - Poor quality sleep [Unknown]
  - Musculoskeletal chest pain [Unknown]
  - Amnesia [Unknown]
  - Dysgeusia [Unknown]
